FAERS Safety Report 20049442 (Version 1)
Quarter: 2021Q4

REPORT INFORMATION
  Report Type: Spontaneous
  Country: US (occurrence: US)
  Receive Date: 20211109
  Receipt Date: 20211109
  Transmission Date: 20220303
  Serious: No
  Sender: FDA-Public Use
  Company Number: US-ORGANON-O2110USA001196

PATIENT
  Age: 37 Year
  Sex: Female
  Weight: 90.71 kg

DRUGS (2)
  1. NEXPLANON [Suspect]
     Active Substance: ETONOGESTREL
     Indication: Contraception
     Dosage: 1 DOSAGE FORM (1 ROD FOR 5 YEARS)
     Route: 059
     Dates: start: 20200128
  2. METFORMIN [Concomitant]
     Active Substance: METFORMIN HYDROCHLORIDE
     Dosage: 2000 MILLIGRAM, BID
     Route: 048

REACTIONS (11)
  - Product prescribing issue [Unknown]
  - Heavy menstrual bleeding [Not Recovered/Not Resolved]
  - Glycosylated haemoglobin increased [Not Recovered/Not Resolved]
  - Blood insulin increased [Not Recovered/Not Resolved]
  - Ovarian cyst [Not Recovered/Not Resolved]
  - Alopecia [Not Recovered/Not Resolved]
  - Acne [Not Recovered/Not Resolved]
  - Headache [Not Recovered/Not Resolved]
  - Weight increased [Not Recovered/Not Resolved]
  - Asthenia [Not Recovered/Not Resolved]
  - Frustration tolerance decreased [Not Recovered/Not Resolved]

NARRATIVE: CASE EVENT DATE: 20200128
